FAERS Safety Report 6295794-7 (Version None)
Quarter: 2009Q3

REPORT INFORMATION
  Report Type: 
  Country: None (occurrence: None)
  Receive Date: 20090804
  Receipt Date: 20090803
  Transmission Date: 20100115
  Serious: Yes (Other)
  Sender: FDA-Public Use
  Company Number: US-PFIZER INC-2009225448

PATIENT
  Sex: Male

DRUGS (1)
  1. GEODON [Suspect]
     Route: 030

REACTIONS (3)
  - EYE ROLLING [None]
  - LOSS OF CONSCIOUSNESS [None]
  - TACHYCARDIA [None]
